FAERS Safety Report 21612456 (Version 3)
Quarter: 2022Q4

REPORT INFORMATION
  Report Type: Spontaneous
  Country: US (occurrence: US)
  Receive Date: 20221118
  Receipt Date: 20221208
  Transmission Date: 20230112
  Serious: Yes (Death, Other)
  Sender: FDA-Public Use
  Company Number: US-CELLTRION INC.-2022US019122

PATIENT

DRUGS (1)
  1. TRUXIMA [Suspect]
     Active Substance: RITUXIMAB-ABBS
     Indication: Lymphoma
     Dosage: 800 MG EVERY 3 WEEKS, LAST DOSE WAS ON 06 OCT
     Route: 042
     Dates: end: 20221006

REACTIONS (2)
  - Atrial fibrillation [Fatal]
  - Arrhythmia [Fatal]

NARRATIVE: CASE EVENT DATE: 20221013
